FAERS Safety Report 5422971-7 (Version None)
Quarter: 2007Q3

REPORT INFORMATION
  Report Type: 
  Country: None (occurrence: None)
  Receive Date: 20070820
  Receipt Date: 20070803
  Transmission Date: 20080115
  Serious: Yes (Life-Threatening)
  Sender: FDA-Public Use
  Company Number: 2007RR-09197

PATIENT
  Age: 15 Year
  Sex: Female
  Weight: 48 kg

DRUGS (1)
  1. PARACETAMOL CAPSULES 500MG (ACETAMINOPHEN/PARACETAMOL) UNKNOWN [Suspect]
     Dosage: 48 G, ORAL
     Route: 048

REACTIONS (3)
  - HYPOKALAEMIA [None]
  - INTENTIONAL OVERDOSE [None]
  - VOMITING [None]
